FAERS Safety Report 5262504-1 (Version None)
Quarter: 2007Q1

REPORT INFORMATION
  Report Type: 
  Country: None (occurrence: None)
  Receive Date: 20070312
  Receipt Date: 20070306
  Transmission Date: 20070707
  Serious: Yes (Death)
  Sender: FDA-Public Use
  Company Number: US-BRISTOL-MYERS SQUIBB COMPANY-13703426

PATIENT
  Age: 51 Year
  Sex: Male

DRUGS (3)
  1. CISPLATIN [Suspect]
     Indication: CHORIOCARCINOMA
  2. ETOPOSIDE [Suspect]
     Indication: CHORIOCARCINOMA
  3. BLEOMYCIN [Suspect]
     Indication: CHORIOCARCINOMA

REACTIONS (5)
  - ACUTE RESPIRATORY DISTRESS SYNDROME [None]
  - GASTROINTESTINAL HAEMORRHAGE [None]
  - INTESTINAL PERFORATION [None]
  - PNEUMOTHORAX [None]
  - RENAL FAILURE [None]
